FAERS Safety Report 4761085-6 (Version None)
Quarter: 2005Q3

REPORT INFORMATION
  Report Type: 
  Country: None (occurrence: None)
  Receive Date: 20050901
  Receipt Date: 20050819
  Transmission Date: 20060218
  Serious: Yes (Other)
  Sender: FDA-Public Use
  Company Number: 2005118818

PATIENT
  Age: 37 Year
  Sex: Female
  Weight: 52 kg

DRUGS (1)
  1. GABAPENTIN [Suspect]
     Indication: NEUROPATHIC PAIN
     Dosage: 300 MG (100 MG, 3 IN 1 D), ORAL
     Route: 048

REACTIONS (2)
  - BLOOD ALKALINE PHOSPHATASE INCREASED [None]
  - LIVER FUNCTION TEST ABNORMAL [None]
